FAERS Safety Report 4494647-4 (Version None)
Quarter: 2004Q4

REPORT INFORMATION
  Report Type: 
  Country: None (occurrence: None)
  Receive Date: 20041103
  Receipt Date: 20041021
  Transmission Date: 20050328
  Serious: Yes (Hospitalization)
  Sender: FDA-Public Use
  Company Number: 209472

PATIENT
  Age: 71 Year
  Sex: Male
  Weight: 45 kg

DRUGS (7)
  1. RITUXAN [Suspect]
     Dosage: 550 MG, INTRAVENOUS
     Route: 042
     Dates: start: 20040522
  2. CYCLOPHOSPHAMIDE [Suspect]
     Indication: NON-HODGKIN'S LYMPHOMA
     Dosage: 1100 MG
     Dates: start: 20040501
  3. DOXORUBICIN HYDROCHLORIDE [Suspect]
     Indication: NON-HODGKIN'S LYMPHOMA
     Dosage: 73 MG, INTRAVENOUS
     Route: 042
     Dates: start: 20040501
  4. VINCRISTINE [Suspect]
     Indication: NON-HODGKIN'S LYMPHOMA
     Dosage: 2 MG, INTRAVENOUS
     Route: 042
     Dates: start: 20040501
  5. PREDNISOLONE [Suspect]
     Indication: NON-HODGKIN'S LYMPHOMA
     Dosage: 60 MG, ORAL
     Route: 048
     Dates: start: 20040501
  6. EPOETIN BETA(EPOETIN BETA) [Suspect]
     Indication: ANAEMIA
     Dosage: 36000 IU, 1/WEEK, INTRAVENOUS
     Route: 042
     Dates: start: 20040706, end: 20040726
  7. G-CSF (FILGRASTIM) [Concomitant]

REACTIONS (5)
  - ANAEMIA POSTOPERATIVE [None]
  - IMMUNOSUPPRESSION [None]
  - MALAISE [None]
  - PNEUMOCYSTIS CARINII PNEUMONIA [None]
  - PROCEDURAL COMPLICATION [None]
